FAERS Safety Report 10272817 (Version 1)
Quarter: 2014Q2

REPORT INFORMATION
  Report Type: Spontaneous
  Country: US (occurrence: None)
  Receive Date: 20140630
  Receipt Date: 20140630
  Transmission Date: 20141212
  Serious: Yes (Other)
  Sender: FDA-Public Use
  Company Number: None

PATIENT
  Sex: 0

DRUGS (1)
  1. MODAFINIL [Suspect]
     Indication: NARCOLEPSY
     Dosage: 1 PILL TWICE DAILY TAKEN BY MOUTH
     Route: 048
     Dates: start: 20140414, end: 20140628

REACTIONS (4)
  - Product substitution issue [None]
  - Drug effect decreased [None]
  - Cataplexy [None]
  - Product quality issue [None]
